FAERS Safety Report 10986653 (Version 1)
Quarter: 2015Q2

REPORT INFORMATION
  Report Type: Spontaneous
  Country: JP (occurrence: None)
  Receive Date: 20150402
  Receipt Date: 20150402
  Transmission Date: 20150821
  Serious: Yes (Other)
  Sender: FDA-Public Use
  Company Number: 2015BCR00113

PATIENT
  Age: 80 Year

DRUGS (1)
  1. RAPIACTA [Suspect]
     Active Substance: PERAMIVIR
     Indication: INFLUENZA
     Route: 042
     Dates: start: 201501, end: 201501

REACTIONS (1)
  - Pneumonitis [None]

NARRATIVE: CASE EVENT DATE: 201501
